FAERS Safety Report 10283226 (Version 2)
Quarter: 2014Q3

REPORT INFORMATION
  Report Type: Report from Study
  Country: TH (occurrence: TH)
  Receive Date: 20140708
  Receipt Date: 20140710
  Transmission Date: 20150326
  Serious: Yes (Death, Hospitalization)
  Sender: FDA-Public Use
  Company Number: PHHY2014TH082560

PATIENT
  Age: 58 Year
  Sex: Female

DRUGS (1)
  1. GLIVEC [Suspect]
     Active Substance: IMATINIB MESYLATE
     Indication: GASTROINTESTINAL STROMAL TUMOUR
     Dosage: 800 MG

REACTIONS (2)
  - Abdominal pain [Recovering/Resolving]
  - Tumour rupture [Fatal]

NARRATIVE: CASE EVENT DATE: 20140622
